FAERS Safety Report 21196988 (Version 1)
Quarter: 2022Q3

REPORT INFORMATION
  Report Type: Spontaneous
  Country: US (occurrence: US)
  Receive Date: 20220810
  Receipt Date: 20220810
  Transmission Date: 20221026
  Serious: No
  Sender: FDA-Public Use
  Company Number: US-SA-2022SA290302

PATIENT
  Sex: Male

DRUGS (15)
  1. CLOBAZAM [Suspect]
     Active Substance: CLOBAZAM
     Indication: Autism spectrum disorder
     Dosage: UNK
     Route: 065
  2. LORAZEPAM [Suspect]
     Active Substance: LORAZEPAM
     Indication: Catatonia
     Dosage: 3 MG, QD
     Route: 065
  3. LORAZEPAM [Suspect]
     Active Substance: LORAZEPAM
     Dosage: 18 MG, QD (GRADUALLY INCREASED)
     Route: 065
  4. LORAZEPAM [Suspect]
     Active Substance: LORAZEPAM
     Dosage: 0.5 MG, QM (GRADUALLY REDUCED)
     Route: 065
  5. LORAZEPAM [Suspect]
     Active Substance: LORAZEPAM
     Dosage: 16 MG, QD (REDUCED)
     Route: 065
  6. LORAZEPAM [Suspect]
     Active Substance: LORAZEPAM
     Dosage: 20 MG, QD (INCREASED)
     Route: 065
  7. QUETIAPINE FUMARATE [Suspect]
     Active Substance: QUETIAPINE FUMARATE
     Indication: Autism spectrum disorder
     Dosage: UNK
     Route: 065
  8. ARIPIPRAZOLE [Suspect]
     Active Substance: ARIPIPRAZOLE
     Indication: Autism spectrum disorder
     Dosage: UNK
     Route: 065
  9. RISPERIDONE [Suspect]
     Active Substance: RISPERIDONE
     Indication: Autism spectrum disorder
     Dosage: UNK
     Route: 065
  10. LITHIUM [Suspect]
     Active Substance: LITHIUM
     Indication: Autism spectrum disorder
     Dosage: UNK
     Route: 065
  11. OXCARBAZEPINE [Suspect]
     Active Substance: OXCARBAZEPINE
     Indication: Autism spectrum disorder
     Dosage: UNK
     Route: 065
  12. MEMANTINE HYDROCHLORIDE [Suspect]
     Active Substance: MEMANTINE HYDROCHLORIDE
     Indication: Catatonia
     Dosage: MAXIMUM TOTAL DAILY DOSAGE OF 20 MG
     Route: 065
  13. ZOLPIDEM TARTRATE [Suspect]
     Active Substance: ZOLPIDEM TARTRATE
     Indication: Catatonia
     Dosage: MAXIMUM TOTAL DAILY DOSAGE OF 10 MG
     Route: 065
  14. ACETYLCYSTEINE [Concomitant]
     Active Substance: ACETYLCYSTEINE
     Indication: Autism spectrum disorder
     Route: 065
  15. DEFLAZACORT [Concomitant]
     Active Substance: DEFLAZACORT
     Indication: Autism spectrum disorder
     Dosage: 30 MG, QD
     Route: 065

REACTIONS (7)
  - Catatonia [Recovered/Resolved]
  - Grimacing [Recovered/Resolved]
  - Stereotypy [Recovered/Resolved]
  - Social avoidant behaviour [Recovered/Resolved]
  - Rebound effect [Recovered/Resolved]
  - Restlessness [Recovered/Resolved]
  - Off label use [Unknown]
